FAERS Safety Report 11876350 (Version 2)
Quarter: 2016Q1

REPORT INFORMATION
  Report Type: Spontaneous
  Country: US (occurrence: US)
  Receive Date: 20151229
  Receipt Date: 20160114
  Transmission Date: 20160526
  Serious: Yes (Other)
  Sender: FDA-Public Use
  Company Number: US-JNJFOC-20151218135

PATIENT
  Sex: Female
  Weight: 79.38 kg

DRUGS (1)
  1. REMICADE [Suspect]
     Active Substance: INFLIXIMAB
     Indication: RHEUMATOID ARTHRITIS
     Dosage: 6 TREATMENT OF 6 WEEKS
     Route: 042
     Dates: start: 1997, end: 1998

REACTIONS (5)
  - Hypertension [Recovered/Resolved]
  - Urticaria [Recovered/Resolved]
  - Chest discomfort [Recovered/Resolved]
  - Infusion related reaction [Recovered/Resolved]
  - Apparent death [Unknown]
